FAERS Safety Report 18763435 (Version 1)
Quarter: 2021Q1

REPORT INFORMATION
  Report Type: Spontaneous
  Country: IT (occurrence: IT)
  Receive Date: 20210120
  Receipt Date: 20210120
  Transmission Date: 20210419
  Serious: Yes (Hospitalization, Other)
  Sender: FDA-Public Use
  Company Number: IT-LUPIN PHARMACEUTICALS INC.-2021-00332

PATIENT
  Age: 65 Year
  Sex: Male

DRUGS (2)
  1. CEFIDEROCOL. [Concomitant]
     Active Substance: CEFIDEROCOL
     Indication: ACINETOBACTER BACTERAEMIA
     Dosage: 1.5 GRAM, BID
     Route: 065
  2. SULFAMETHOXAZOLE AND TRIMETHOPRIM [Suspect]
     Active Substance: SULFAMETHOXAZOLE\TRIMETHOPRIM
     Indication: KLEBSIELLA INFECTION
     Dosage: UNK (MIC LESS THAN 2 MICROG/ML)
     Route: 065

REACTIONS (1)
  - Myelosuppression [Unknown]
